FAERS Safety Report 5003824-5 (Version None)
Quarter: 2006Q2

REPORT INFORMATION
  Report Type: 
  Country: None (occurrence: None)
  Receive Date: 20060515
  Receipt Date: 20060502
  Transmission Date: 20061013
  Serious: Yes (Hospitalization)
  Sender: FDA-Public Use
  Company Number: 2006018257

PATIENT
  Age: 38 Year
  Sex: Male
  Weight: 68.9 kg

DRUGS (3)
  1. SUTENT [Suspect]
     Indication: RENAL CELL CARCINOMA STAGE UNSPECIFIED
     Dosage: 50 MG (50 MG, 1 IN 1 D), ORAL
     Route: 048
     Dates: start: 20060120, end: 20060128
  2. ACETAMINOPHEN [Concomitant]
  3. INTERFERON ALFA          (INTERFERON ALFA) [Concomitant]

REACTIONS (6)
  - BLOOD BILIRUBIN INCREASED [None]
  - BLOOD CREATINE INCREASED [None]
  - CLOSTRIDIUM DIFFICILE TOXIN TEST POSITIVE [None]
  - LETHARGY [None]
  - PYREXIA [None]
  - TUMOUR NECROSIS [None]
